FAERS Safety Report 7781999-2 (Version None)
Quarter: 2011Q3

REPORT INFORMATION
  Report Type: 
  Country: None (occurrence: None)
  Receive Date: 20110927
  Receipt Date: 20110915
  Transmission Date: 20111222
  Serious: Yes (Hospitalization, Other)
  Sender: FDA-Public Use
  Company Number: PHHY2011DE78286

PATIENT
  Sex: Male
  Weight: 120 kg

DRUGS (6)
  1. SPIRIVA [Concomitant]
     Indication: CHRONIC OBSTRUCTIVE PULMONARY DISEASE
  2. LISINOPRIL [Concomitant]
  3. METFORMIN HCL [Concomitant]
  4. FALICARD [Concomitant]
  5. ONBREZ [Suspect]
     Indication: CHRONIC OBSTRUCTIVE PULMONARY DISEASE
     Dosage: 300 UG, QD
     Dates: start: 20110601
  6. ONBREZ [Suspect]
     Dosage: 150 UG, QD

REACTIONS (1)
  - TACHYARRHYTHMIA [None]
